FAERS Safety Report 19561869 (Version 1)
Quarter: 2021Q3

REPORT INFORMATION
  Report Type: Spontaneous
  Country: GB (occurrence: GB)
  Receive Date: 20210715
  Receipt Date: 20210715
  Transmission Date: 20211014
  Serious: Yes (Hospitalization, Disabling)
  Sender: FDA-Public Use
  Company Number: GB-BAYER-2021-171048

PATIENT
  Age: 62 Year
  Sex: Female
  Weight: 59.5 kg

DRUGS (10)
  1. DALTEPARIN SODIUM [Concomitant]
     Active Substance: DALTEPARIN SODIUM
  2. PARACETAMOL [Concomitant]
     Active Substance: ACETAMINOPHEN
  3. PREGABALIN. [Concomitant]
     Active Substance: PREGABALIN
  4. SANDO K [POTASSIUM BICARBONATE;POTASSIUM CHLORIDE] [Concomitant]
     Active Substance: POTASSIUM BICARBONATE\POTASSIUM CHLORIDE
  5. CARBOCISTEINE [Concomitant]
     Active Substance: CARBOCYSTEINE
  6. TAZOCIN [Concomitant]
     Active Substance: PIPERACILLIN SODIUM\TAZOBACTAM SODIUM
  7. LENALIDOMIDE [Concomitant]
     Active Substance: LENALIDOMIDE
  8. CALCI?D [Concomitant]
     Active Substance: CALCIUM CARBONATE\CHOLECALCIFEROL
  9. NORMAL SALINE [Concomitant]
     Active Substance: SODIUM CHLORIDE
  10. CIPROXIN 400/200 MG/ML [Suspect]
     Active Substance: CIPROFLOXACIN
     Indication: NEUTROPENIC SEPSIS
     Dosage: 400 MG, TID
     Route: 042
     Dates: start: 20210702, end: 20210704

REACTIONS (7)
  - Anxiety [Unknown]
  - Acute psychosis [Recovering/Resolving]
  - Paranoia [Recovered/Resolved]
  - Confusional state [Recovered/Resolved]
  - Delirium [Unknown]
  - Agitation [Unknown]
  - Feeling abnormal [Unknown]

NARRATIVE: CASE EVENT DATE: 20210702
